FAERS Safety Report 15645233 (Version 2)
Quarter: 2018Q4

REPORT INFORMATION
  Report Type: Report from Study
  Country: US (occurrence: US)
  Receive Date: 20181121
  Receipt Date: 20181217
  Transmission Date: 20190205
  Serious: Yes (Other)
  Sender: FDA-Public Use
  Company Number: US-TESARO-2018-TSO1400-US

PATIENT
  Sex: Female

DRUGS (1)
  1. ZEJULA [Suspect]
     Active Substance: NIRAPARIB
     Indication: OVARIAN CANCER
     Dosage: 200 MG, QD AT 21:00 WITH FOOD
     Dates: start: 20180923

REACTIONS (14)
  - Balance disorder [Unknown]
  - Hepatic enzyme abnormal [Unknown]
  - Red cell distribution width increased [Unknown]
  - Constipation [Not Recovered/Not Resolved]
  - Sinus disorder [Unknown]
  - Dysgraphia [Unknown]
  - Blood alkaline phosphatase increased [Unknown]
  - Neuropathy peripheral [Not Recovered/Not Resolved]
  - Carbohydrate antigen 125 increased [Unknown]
  - Abdominal hernia [Not Recovered/Not Resolved]
  - Globulins increased [Unknown]
  - Hot flush [Not Recovered/Not Resolved]
  - Hypoaesthesia [Unknown]
  - Nausea [Recovering/Resolving]
